FAERS Safety Report 14820575 (Version 1)
Quarter: 2018Q2

REPORT INFORMATION
  Report Type: Spontaneous
  Country: US (occurrence: US)
  Receive Date: 20180427
  Receipt Date: 20180427
  Transmission Date: 20180711
  Serious: Yes (Death)
  Sender: FDA-Public Use
  Company Number: US-PFIZER INC-2018174199

PATIENT

DRUGS (10)
  1. PREVACID [Suspect]
     Active Substance: LANSOPRAZOLE
  2. PREVACID 24 HR [Suspect]
     Active Substance: LANSOPRAZOLE
  3. ACIPHEX [Suspect]
     Active Substance: RABEPRAZOLE SODIUM
  4. PROTONIX [Suspect]
     Active Substance: PANTOPRAZOLE SODIUM
     Dosage: UNK
  5. NEXIUM [Suspect]
     Active Substance: ESOMEPRAZOLE MAGNESIUM
  6. PRILOSEC [Suspect]
     Active Substance: OMEPRAZOLE MAGNESIUM
  7. NEXIUM 24HR [Suspect]
     Active Substance: ESOMEPRAZOLE MAGNESIUM
  8. PRILOSEC OTC [Suspect]
     Active Substance: OMEPRAZOLE MAGNESIUM
  9. DEXILANT [Suspect]
     Active Substance: DEXLANSOPRAZOLE
  10. VIMOVO [Suspect]
     Active Substance: ESOMEPRAZOLE MAGNESIUM\NAPROXEN

REACTIONS (1)
  - Death [Fatal]
